FAERS Safety Report 6959329-5 (Version None)
Quarter: 2010Q3

REPORT INFORMATION
  Report Type: 
  Country: None (occurrence: None)
  Receive Date: 20100831
  Receipt Date: 20100831
  Transmission Date: 20110219
  Serious: Yes (Disabling)
  Sender: FDA-Public Use
  Company Number: None

PATIENT
  Sex: Male
  Weight: 102.3 kg

DRUGS (2)
  1. FLAGYL [Suspect]
     Indication: CLOSTRIDIAL INFECTION
     Dosage: 500 MG 3 X DAILY ORAL
     Route: 048
     Dates: start: 20100222, end: 20100304
  2. FLAGYL [Suspect]
     Indication: CLOSTRIDIAL INFECTION
     Dosage: 500 MG 3 X DAILY ORAL
     Route: 048
     Dates: start: 20100306, end: 20100310

REACTIONS (3)
  - INSOMNIA [None]
  - PAIN [None]
  - TINNITUS [None]
